FAERS Safety Report 23543830 (Version 4)
Quarter: 2024Q2

REPORT INFORMATION
  Report Type: Spontaneous
  Country: US (occurrence: US)
  Receive Date: 20240220
  Receipt Date: 20240424
  Transmission Date: 20240716
  Serious: No
  Sender: FDA-Public Use
  Company Number: US-PFIZER INC-202400034761

PATIENT
  Age: 16 Year
  Sex: Male
  Weight: 39.909 kg

DRUGS (1)
  1. GENOTROPIN [Suspect]
     Active Substance: SOMATROPIN
     Indication: Growth disorder
     Dosage: 1.8 MG, 1X/DAY
     Dates: start: 2022

REACTIONS (2)
  - Device information output issue [Unknown]
  - Device use issue [Unknown]

NARRATIVE: CASE EVENT DATE: 20240201
